FAERS Safety Report 7360316-6 (Version None)
Quarter: 2011Q1

REPORT INFORMATION
  Report Type: 
  Country: None (occurrence: None)
  Receive Date: 20110310
  Receipt Date: 20110223
  Transmission Date: 20110831
  Serious: Yes (Other)
  Sender: FDA-Public Use
  Company Number: PHHY2011JP15231

PATIENT
  Age: 60 Year
  Sex: Male

DRUGS (3)
  1. BEVACIZUMAB [Suspect]
     Indication: MYOPIA
  2. VISUDYNE [Suspect]
     Indication: MYOPIA
  3. LUCENTIS [Suspect]
     Indication: MYOPIA

REACTIONS (1)
  - MACULAR HOLE [None]
